FAERS Safety Report 9557975 (Version 1)
Quarter: 2013Q3

REPORT INFORMATION
  Report Type: Spontaneous
  Country: GB (occurrence: GB)
  Receive Date: 20130926
  Receipt Date: 20130926
  Transmission Date: 20140515
  Serious: Yes (Hospitalization, Other)
  Sender: FDA-Public Use
  Company Number: GB-MYLANLABS-2013S1021187

PATIENT
  Sex: Female

DRUGS (1)
  1. EPIPEN [Suspect]
     Indication: ANAPHYLACTIC REACTION

REACTIONS (1)
  - Device failure [Unknown]
